FAERS Safety Report 10221792 (Version 1)
Quarter: 2014Q2

REPORT INFORMATION
  Report Type: Spontaneous
  Country: US (occurrence: US)
  Receive Date: 20140606
  Receipt Date: 20140606
  Transmission Date: 20141212
  Serious: No
  Sender: FDA-Public Use
  Company Number: US-BIOMARINAP-US-2013-101504

PATIENT
  Age: 2 Year
  Sex: Male
  Weight: 13 kg

DRUGS (3)
  1. NAGLAZYME [Suspect]
     Indication: MUCOPOLYSACCHARIDOSIS VI
     Dosage: 15 MG, QW
     Route: 041
     Dates: start: 20130507
  2. CHILDREN^S BENADRYL ALLERGY + SINUS [Concomitant]
     Indication: PREMEDICATION
     Dosage: 1 UNK, UNK
     Dates: start: 20130507
  3. MOTRIN CHILDREN [Concomitant]
     Indication: PREMEDICATION
     Dosage: UNK
     Dates: start: 20130507

REACTIONS (1)
  - Catheter management [Recovered/Resolved]
